FAERS Safety Report 4847798-6 (Version None)
Quarter: 2005Q4

REPORT INFORMATION
  Report Type: 
  Country: None (occurrence: None)
  Receive Date: 20051205
  Receipt Date: 20051128
  Transmission Date: 20060501
  Serious: Yes (Hospitalization)
  Sender: FDA-Public Use
  Company Number: 200510110BSV

PATIENT
  Age: 57 Year
  Sex: Male

DRUGS (2)
  1. ADALAT [Suspect]
     Indication: HYPERTENSION
     Dosage: 20 MG, TOTAL DAILY, ORAL
     Route: 048
     Dates: start: 20050405, end: 20050406
  2. CYKLOKAPRON [Concomitant]

REACTIONS (5)
  - ANAEMIA [None]
  - COORDINATION ABNORMAL [None]
  - EPISTAXIS [None]
  - HYPOAESTHESIA [None]
  - SENSORY DISTURBANCE [None]
